FAERS Safety Report 19044433 (Version 1)
Quarter: 2021Q1

REPORT INFORMATION
  Report Type: Report from Study
  Country: NL (occurrence: NL)
  Receive Date: 20210323
  Receipt Date: 20210323
  Transmission Date: 20210420
  Serious: Yes (Death)
  Sender: FDA-Public Use
  Company Number: NL-PFIZER INC-2021291278

PATIENT
  Age: 49 Year
  Sex: Male

DRUGS (1)
  1. CYTARABINE. [Suspect]
     Active Substance: CYTARABINE
     Indication: ACUTE MYELOID LEUKAEMIA
     Dosage: 200 MG/M2, DAILY FOR 7 DAYS

REACTIONS (4)
  - Peritonitis [Fatal]
  - Rectal haemorrhage [Fatal]
  - Ileus [Fatal]
  - Pulmonary haemorrhage [Fatal]
